FAERS Safety Report 25301154 (Version 3)
Quarter: 2025Q2

REPORT INFORMATION
  Report Type: Spontaneous
  Country: US (occurrence: US)
  Receive Date: 20250512
  Receipt Date: 20250519
  Transmission Date: 20250717
  Serious: No
  Sender: BAYER HEALTHCARE PHARMACEUTICALS INC.
  Company Number: US-BAYER-2025A063263

PATIENT
  Age: 56 Year
  Sex: Female

DRUGS (1)
  1. ESTRADIOL [Suspect]
     Active Substance: ESTRADIOL
     Dates: end: 20250429

REACTIONS (3)
  - Hyperhidrosis [None]
  - Device adhesion issue [None]
  - Incorrect dose administered [None]

NARRATIVE: CASE EVENT DATE: 20250429
